FAERS Safety Report 10358207 (Version 1)
Quarter: 2014Q3

REPORT INFORMATION
  Report Type: Spontaneous
  Country: US (occurrence: US)
  Receive Date: 20140801
  Receipt Date: 20140801
  Transmission Date: 20150326
  Serious: No
  Sender: FDA-Public Use
  Company Number: US-PFIZER INC-2014213519

PATIENT
  Age: 51 Year
  Sex: Male
  Weight: 78.46 kg

DRUGS (2)
  1. LISINOPRIL AND HYDROCHLOROTHIAZIDE [Concomitant]
     Active Substance: HYDROCHLOROTHIAZIDE\LISINOPRIL
     Indication: HYPERTENSION
     Dosage: [LISINOPRIL10MG/HYDROCHLOROTHIAZIDE12.5 MG], DAILY
  2. TOVIAZ [Suspect]
     Active Substance: FESOTERODINE FUMARATE
     Indication: POLLAKIURIA
     Dosage: 4 MG, DAILY
     Dates: start: 20140723

REACTIONS (3)
  - Dry mouth [Unknown]
  - Abdominal discomfort [Unknown]
  - Dysphonia [Unknown]

NARRATIVE: CASE EVENT DATE: 20140723
